FAERS Safety Report 13292001 (Version 1)
Quarter: 2017Q1

REPORT INFORMATION
  Report Type: Spontaneous
  Country: US (occurrence: US)
  Receive Date: 20170302
  Receipt Date: 20170302
  Transmission Date: 20170428
  Serious: No
  Sender: FDA-Public Use
  Company Number: None

PATIENT

DRUGS (2)
  1. PRIVIGEN [Suspect]
     Active Substance: HUMAN IMMUNOGLOBULIN G
     Route: 042
  2. HUMAN ALBUMIN [Suspect]
     Active Substance: ALBUMIN HUMAN
     Route: 042

REACTIONS (1)
  - Product packaging confusion [None]

NARRATIVE: CASE EVENT DATE: 20170215
